FAERS Safety Report 22630506 (Version 1)
Quarter: 2023Q2

REPORT INFORMATION
  Report Type: Spontaneous
  Country: FR (occurrence: FR)
  Receive Date: 20230622
  Receipt Date: 20230622
  Transmission Date: 20230722
  Serious: Yes (Hospitalization)
  Sender: FDA-Public Use
  Company Number: None

PATIENT
  Age: 58 Year
  Sex: Male

DRUGS (3)
  1. MEROPENEM [Suspect]
     Active Substance: MEROPENEM
     Indication: Infection
     Dosage: 1 G
     Route: 042
     Dates: start: 20220722
  2. AMBISOME [Suspect]
     Active Substance: AMPHOTERICIN B
     Indication: Infection
     Dosage: 210 MG
     Route: 042
     Dates: start: 20220722
  3. AMIKACIN [Suspect]
     Active Substance: AMIKACIN
     Indication: Infection
     Dosage: 1.7 G
     Route: 050
     Dates: start: 20220722

REACTIONS (1)
  - Face oedema [Not Recovered/Not Resolved]

NARRATIVE: CASE EVENT DATE: 20220725
